APPROVED DRUG PRODUCT: QULIPTA
Active Ingredient: ATOGEPANT
Strength: 10MG
Dosage Form/Route: TABLET;ORAL
Application: N215206 | Product #001
Applicant: ABBVIE INC
Approved: Sep 28, 2021 | RLD: Yes | RS: No | Type: RX

PATENTS:
Patent 12090148 | Expires: Jul 29, 2041
Patent 12350259 | Expires: Feb 27, 2043
Patent 12383545 | Expires: Jun 6, 2039
Patent 12465598 | Expires: Sep 27, 2042
Patent 9499545 | Expires: Nov 10, 2031
Patent 8754096 | Expires: Jul 19, 2032
Patent 9850246 | Expires: Mar 13, 2033
Patent 10117836 | Expires: Jan 30, 2035

EXCLUSIVITY:
Code: I-909 | Date: Apr 17, 2026
Code: NCE | Date: Sep 28, 2026